FAERS Safety Report 8789350 (Version 1)
Quarter: 2012Q4

REPORT INFORMATION
  Report Type: Spontaneous
  Country: US (occurrence: None)
  Receive Date: 20120910
  Receipt Date: 20120910
  Transmission Date: 20130627
  Serious: Yes (Hospitalization)
  Sender: FDA-Public Use
  Company Number: None

PATIENT
  Age: 77 Year
  Sex: Female
  Weight: 60 kg

DRUGS (12)
  1. IBUPROFEN [Suspect]
     Route: 048
  2. SERTRALINE [Concomitant]
  3. TRAMADOL [Concomitant]
  4. LEVOTHYROXINE [Suspect]
  5. TRIAMCINOLONE [Concomitant]
  6. OXYBUTYNIN [Concomitant]
  7. AMLODIPINE [Concomitant]
  8. CLOBETASOL [Concomitant]
  9. BENAZEPRIL [Concomitant]
  10. ATENOLOL [Concomitant]
  11. MULTIVITAMINS [Concomitant]
  12. CALCIUM W/D [Concomitant]

REACTIONS (6)
  - Upper gastrointestinal haemorrhage [None]
  - Diarrhoea [None]
  - Incontinence [None]
  - Vomiting [None]
  - Faeces discoloured [None]
  - Melaena [None]
